FAERS Safety Report 4621499-1 (Version None)
Quarter: 2005Q1

REPORT INFORMATION
  Report Type: 
  Country: None (occurrence: None)
  Receive Date: 20050328
  Receipt Date: 20031125
  Transmission Date: 20050727
  Serious: No
  Sender: FDA-Public Use
  Company Number: 10082

PATIENT
  Age: 61 Year
  Sex: Male

DRUGS (5)
  1. METHOTREXATE [Suspect]
     Dosage: 0.857 MG
     Dates: start: 20030203, end: 20031002
  2. ALFACACIDOL [Concomitant]
  3. DICLOFENAC SODIUM [Concomitant]
  4. MAGNESIUM OXIDE [Concomitant]
  5. MISOPROSTOL [Concomitant]

REACTIONS (5)
  - ANOREXIA [None]
  - BONE MARROW DEPRESSION [None]
  - DIARRHOEA [None]
  - INTERSTITIAL LUNG DISEASE [None]
  - RENAL DISORDER [None]
